FAERS Safety Report 17397057 (Version 1)
Quarter: 2020Q1

REPORT INFORMATION
  Report Type: Spontaneous
  Country: US (occurrence: US)
  Receive Date: 20200210
  Receipt Date: 20200210
  Transmission Date: 20200409
  Serious: Yes (Other)
  Sender: FDA-Public Use
  Company Number: US-ALFASIGMA USA, INC.-2019US011882

PATIENT

DRUGS (3)
  1. ZELNORM [Suspect]
     Active Substance: TEGASEROD MALEATE
     Indication: IMPAIRED GASTRIC EMPTYING
  2. FLUOXETINE [Concomitant]
     Active Substance: FLUOXETINE HYDROCHLORIDE
  3. ZELNORM [Suspect]
     Active Substance: TEGASEROD MALEATE
     Indication: IRRITABLE BOWEL SYNDROME
     Dosage: 6 MG, BID
     Route: 048

REACTIONS (1)
  - Serotonin syndrome [Recovered/Resolved]
